FAERS Safety Report 8454010 (Version 4)
Quarter: 2013Q1

REPORT INFORMATION
  Report Type: Spontaneous
  Country: US (occurrence: US)
  Receive Date: 20120312
  Receipt Date: 20130122
  Transmission Date: 20140127
  Serious: Yes (Hospitalization)
  Sender: FDA-Public Use
  Company Number: US-BAYER-2012-022691

PATIENT
  Age: 21 Year
  Sex: Female
  Weight: 68.03 kg

DRUGS (6)
  1. YAZ [Suspect]
     Indication: CONTRACEPTION
     Dosage: UNK
     Dates: start: 2008, end: 20100324
  2. YAZ [Suspect]
     Indication: ACNE
  3. YAZ [Suspect]
     Indication: MENSTRUAL DISORDER
  4. ANTIBIOTICS [Concomitant]
  5. ANTIMIGRAINE PREPARATIONS [Concomitant]
  6. NSAID^S [Concomitant]

REACTIONS (7)
  - Cerebrovascular accident [None]
  - Transient ischaemic attack [None]
  - Injury [None]
  - Pain [None]
  - Emotional distress [None]
  - Hemiplegia [None]
  - Gait disturbance [None]
